FAERS Safety Report 9051042 (Version 3)
Quarter: 2013Q4

REPORT INFORMATION
  Report Type: Spontaneous
  Country: AU (occurrence: AU)
  Receive Date: 20130205
  Receipt Date: 20131028
  Transmission Date: 20140711
  Serious: Yes (Other)
  Sender: FDA-Public Use
  Company Number: PHHY2013AU006971

PATIENT
  Age: 3 Year
  Sex: Female
  Weight: 15 kg

DRUGS (1)
  1. EXJADE [Suspect]
     Indication: THALASSAEMIA BETA
     Dosage: 125 MG, DAILY
     Route: 048
     Dates: start: 20120419, end: 20120519

REACTIONS (3)
  - Erythema multiforme [Recovering/Resolving]
  - Rash [Unknown]
  - Skin discolouration [Recovering/Resolving]
